FAERS Safety Report 26141840 (Version 1)
Quarter: 2025Q4

REPORT INFORMATION
  Report Type: Spontaneous
  Country: EU (occurrence: EU)
  Receive Date: 20251210
  Receipt Date: 20251210
  Transmission Date: 20260117
  Serious: Yes (Hospitalization)
  Sender: MYLAN
  Company Number: None

PATIENT
  Age: 24 Year
  Sex: Female
  Weight: 90 kg

DRUGS (32)
  1. ACETAMINOPHEN [Suspect]
     Active Substance: ACETAMINOPHEN
     Indication: Product used for unknown indication
     Dosage: 24 GRAM,1 TOTAL
     Dates: start: 20251118, end: 20251118
  2. ACETAMINOPHEN [Suspect]
     Active Substance: ACETAMINOPHEN
     Dosage: 24 GRAM,1 TOTAL
     Route: 048
     Dates: start: 20251118, end: 20251118
  3. ACETAMINOPHEN [Suspect]
     Active Substance: ACETAMINOPHEN
     Dosage: 24 GRAM,1 TOTAL
     Route: 048
     Dates: start: 20251118, end: 20251118
  4. ACETAMINOPHEN [Suspect]
     Active Substance: ACETAMINOPHEN
     Dosage: 24 GRAM,1 TOTAL
     Dates: start: 20251118, end: 20251118
  5. DEXTROMETHORPHAN HYDROBROMIDE [Concomitant]
     Active Substance: DEXTROMETHORPHAN HYDROBROMIDE
     Indication: Cough
     Dosage: UNK
  6. DEXTROMETHORPHAN HYDROBROMIDE [Concomitant]
     Active Substance: DEXTROMETHORPHAN HYDROBROMIDE
     Dosage: UNK
     Route: 048
  7. DEXTROMETHORPHAN HYDROBROMIDE [Concomitant]
     Active Substance: DEXTROMETHORPHAN HYDROBROMIDE
     Dosage: UNK
     Route: 048
  8. DEXTROMETHORPHAN HYDROBROMIDE [Concomitant]
     Active Substance: DEXTROMETHORPHAN HYDROBROMIDE
     Dosage: UNK
  9. LOXAPINE [Concomitant]
     Active Substance: LOXAPINE
     Indication: Mental disorder
     Dosage: 1 DOSAGE FORM, QD (MORNING AND EVENING)
  10. LOXAPINE [Concomitant]
     Active Substance: LOXAPINE
     Dosage: 1 DOSAGE FORM, QD (MORNING AND EVENING)
     Route: 048
  11. LOXAPINE [Concomitant]
     Active Substance: LOXAPINE
     Dosage: 1 DOSAGE FORM, QD (MORNING AND EVENING)
     Route: 048
  12. LOXAPINE [Concomitant]
     Active Substance: LOXAPINE
     Dosage: 1 DOSAGE FORM, QD (MORNING AND EVENING)
  13. OXAZEPAM [Concomitant]
     Active Substance: OXAZEPAM
     Indication: Borderline personality disorder
     Dosage: 1 DOSAGE FORM, PRN (IF NEEDED, ASNECESSARY)
  14. OXAZEPAM [Concomitant]
     Active Substance: OXAZEPAM
     Dosage: 1 DOSAGE FORM, PRN (IF NEEDED, ASNECESSARY)
     Route: 048
  15. OXAZEPAM [Concomitant]
     Active Substance: OXAZEPAM
     Dosage: 1 DOSAGE FORM, PRN (IF NEEDED, ASNECESSARY)
     Route: 048
  16. OXAZEPAM [Concomitant]
     Active Substance: OXAZEPAM
     Dosage: 1 DOSAGE FORM, PRN (IF NEEDED, ASNECESSARY)
  17. VENLAFAXINE [Concomitant]
     Active Substance: VENLAFAXINE HYDROCHLORIDE
     Indication: Borderline personality disorder
     Dosage: 75 MILLIGRAM, QD (75 MG IN THE MORNING)
  18. VENLAFAXINE [Concomitant]
     Active Substance: VENLAFAXINE HYDROCHLORIDE
     Dosage: 75 MILLIGRAM, QD (75 MG IN THE MORNING)
     Route: 048
  19. VENLAFAXINE [Concomitant]
     Active Substance: VENLAFAXINE HYDROCHLORIDE
     Dosage: 75 MILLIGRAM, QD (75 MG IN THE MORNING)
     Route: 048
  20. VENLAFAXINE [Concomitant]
     Active Substance: VENLAFAXINE HYDROCHLORIDE
     Dosage: 75 MILLIGRAM, QD (75 MG IN THE MORNING)
  21. SERTRALINE HYDROCHLORIDE [Concomitant]
     Active Substance: SERTRALINE HYDROCHLORIDE
     Indication: Borderline personality disorder
     Dosage: 150 MILLIGRAM, QD (2 CAPSULES IN THE MORNING, 1 CAPSULE IN THE EVENING)
     Route: 048
     Dates: start: 20251023, end: 20251030
  22. SERTRALINE HYDROCHLORIDE [Concomitant]
     Active Substance: SERTRALINE HYDROCHLORIDE
     Dosage: 150 MILLIGRAM, QD (2 CAPSULES IN THE MORNING, 1 CAPSULE IN THE EVENING)
     Dates: start: 20251023, end: 20251030
  23. SERTRALINE HYDROCHLORIDE [Concomitant]
     Active Substance: SERTRALINE HYDROCHLORIDE
     Dosage: 150 MILLIGRAM, QD (2 CAPSULES IN THE MORNING, 1 CAPSULE IN THE EVENING)
     Dates: start: 20251023, end: 20251030
  24. SERTRALINE HYDROCHLORIDE [Concomitant]
     Active Substance: SERTRALINE HYDROCHLORIDE
     Dosage: 150 MILLIGRAM, QD (2 CAPSULES IN THE MORNING, 1 CAPSULE IN THE EVENING)
     Route: 048
     Dates: start: 20251023, end: 20251030
  25. SERTRALINE HYDROCHLORIDE [Concomitant]
     Active Substance: SERTRALINE HYDROCHLORIDE
     Dosage: 100 MILLIGRAM, QD (2 CAPSULES IN THE MORNING)
     Dates: start: 20251030, end: 20251106
  26. SERTRALINE HYDROCHLORIDE [Concomitant]
     Active Substance: SERTRALINE HYDROCHLORIDE
     Dosage: 100 MILLIGRAM, QD (2 CAPSULES IN THE MORNING)
     Dates: start: 20251030, end: 20251106
  27. SERTRALINE HYDROCHLORIDE [Concomitant]
     Active Substance: SERTRALINE HYDROCHLORIDE
     Dosage: 100 MILLIGRAM, QD (2 CAPSULES IN THE MORNING)
     Route: 048
     Dates: start: 20251030, end: 20251106
  28. SERTRALINE HYDROCHLORIDE [Concomitant]
     Active Substance: SERTRALINE HYDROCHLORIDE
     Dosage: 100 MILLIGRAM, QD (2 CAPSULES IN THE MORNING)
     Route: 048
     Dates: start: 20251030, end: 20251106
  29. SERTRALINE HYDROCHLORIDE [Concomitant]
     Active Substance: SERTRALINE HYDROCHLORIDE
     Dosage: 50 MILLIGRAM, QD (1 CAPSULE IN THE MORNING)
     Route: 048
     Dates: start: 20251106
  30. SERTRALINE HYDROCHLORIDE [Concomitant]
     Active Substance: SERTRALINE HYDROCHLORIDE
     Dosage: 50 MILLIGRAM, QD (1 CAPSULE IN THE MORNING)
     Dates: start: 20251106
  31. SERTRALINE HYDROCHLORIDE [Concomitant]
     Active Substance: SERTRALINE HYDROCHLORIDE
     Dosage: 50 MILLIGRAM, QD (1 CAPSULE IN THE MORNING)
     Dates: start: 20251106
  32. SERTRALINE HYDROCHLORIDE [Concomitant]
     Active Substance: SERTRALINE HYDROCHLORIDE
     Dosage: 50 MILLIGRAM, QD (1 CAPSULE IN THE MORNING)
     Route: 048
     Dates: start: 20251106

REACTIONS (4)
  - Poisoning deliberate [Recovered/Resolved]
  - Blood alkaline phosphatase increased [Not Recovered/Not Resolved]
  - Hypertransaminasaemia [Recovering/Resolving]
  - Abdominal pain [Recovered/Resolved]

NARRATIVE: CASE EVENT DATE: 20251118
